FAERS Safety Report 18417422 (Version 1)
Quarter: 2020Q4

REPORT INFORMATION
  Report Type: Spontaneous
  Country: US (occurrence: US)
  Receive Date: 20201022
  Receipt Date: 20201022
  Transmission Date: 20210114
  Serious: No
  Sender: FDA-Public Use
  Company Number: 2020SGN02899

PATIENT
  Sex: Female

DRUGS (5)
  1. HERCEPTIN [Concomitant]
     Active Substance: TRASTUZUMAB
     Indication: BREAST CANCER FEMALE
  2. CAPECITABINE. [Concomitant]
     Active Substance: CAPECITABINE
     Indication: BREAST CANCER FEMALE
  3. TUKYSA [Suspect]
     Active Substance: TUCATINIB
     Dosage: 1 DF, BID
  4. TUKYSA [Suspect]
     Active Substance: TUCATINIB
     Dosage: 1 DF, QD
  5. TUKYSA [Suspect]
     Active Substance: TUCATINIB
     Indication: BREAST CANCER FEMALE
     Dosage: 150 MG, BID

REACTIONS (7)
  - Diarrhoea [Unknown]
  - Nausea [Unknown]
  - Malaise [Unknown]
  - Chills [Unknown]
  - Surgery [Unknown]
  - Dyspepsia [Recovering/Resolving]
  - Headache [Unknown]
